FAERS Safety Report 10312995 (Version 1)
Quarter: 2014Q3

REPORT INFORMATION
  Report Type: Spontaneous
  Country: US (occurrence: None)
  Receive Date: 20140717
  Receipt Date: 20140717
  Transmission Date: 20150326
  Serious: Yes (Disabling)
  Sender: FDA-Public Use
  Company Number: None

PATIENT
  Age: 55 Year
  Sex: Female
  Weight: 63.5 kg

DRUGS (1)
  1. HUMALOG [Suspect]
     Active Substance: INSULIN LISPRO
     Indication: TYPE 1 DIABETES MELLITUS
     Dosage: 5 UNITS PER MEAL THREE TIMES DAILY INJECTED INTO FATTY TISSUE UNDER SKIN

REACTIONS (6)
  - Weight increased [None]
  - Blood glucose increased [None]
  - Condition aggravated [None]
  - Product substitution issue [None]
  - Joint stiffness [None]
  - Arthralgia [None]
